FAERS Safety Report 4466187-X (Version None)
Quarter: 2004Q3

REPORT INFORMATION
  Report Type: 
  Country: None (occurrence: None)
  Receive Date: 20040930
  Receipt Date: 20040916
  Transmission Date: 20050211
  Serious: Yes (Hospitalization)
  Sender: FDA-Public Use
  Company Number: 204070

PATIENT
  Age: 37 Year
  Sex: Female
  Weight: 56 kg

DRUGS (4)
  1. AVONEX [Suspect]
     Indication: MULTIPLE SCLEROSIS
     Dosage: 30 MCG QW IM
     Route: 030
     Dates: start: 19980917, end: 20030101
  2. AVONEX [Suspect]
     Indication: MULTIPLE SCLEROSIS
     Dosage: 30 MCG QW IM
     Route: 030
     Dates: start: 20030101
  3. GYNODIAN [Concomitant]
  4. LAFAMME [Concomitant]

REACTIONS (7)
  - ALOPECIA [None]
  - CERVIX CARCINOMA STAGE III [None]
  - CYSTITIS [None]
  - GASTROENTERITIS RADIATION [None]
  - UTERINE LEIOMYOMA [None]
  - VAGINITIS [None]
  - VULVITIS [None]
